FAERS Safety Report 7560626-3 (Version None)
Quarter: 2011Q2

REPORT INFORMATION
  Report Type: 
  Country: None (occurrence: None)
  Receive Date: 20110621
  Receipt Date: 20101104
  Transmission Date: 20111010
  Serious: No
  Sender: FDA-Public Use
  Company Number: US-ASTRAZENECA-2010SE29756

PATIENT
  Sex: Male

DRUGS (1)
  1. ATACAND [Suspect]
     Route: 048

REACTIONS (9)
  - PARAESTHESIA [None]
  - HAEMORRHOIDAL HAEMORRHAGE [None]
  - MUSCULAR WEAKNESS [None]
  - MUSCLE TWITCHING [None]
  - FEELING ABNORMAL [None]
  - BACK INJURY [None]
  - DRUG DOSE OMISSION [None]
  - INSOMNIA [None]
  - PAIN [None]
